FAERS Safety Report 10377868 (Version 1)
Quarter: 2014Q3

REPORT INFORMATION
  Report Type: Report from Study
  Country: MX (occurrence: BR)
  Receive Date: 20140812
  Receipt Date: 20140812
  Transmission Date: 20150326
  Serious: Yes (Hospitalization, Other)
  Sender: FDA-Public Use
  Company Number: PHHY2014BR099194

PATIENT
  Sex: Female

DRUGS (3)
  1. EXELON PATCH [Suspect]
     Active Substance: RIVASTIGMINE
     Indication: DEMENTIA ALZHEIMER^S TYPE
     Dosage: 4.6 MG, QD (ONE ADHESIVE DAILY 9MG/5CM2)
     Route: 062
  2. EXELON PATCH [Suspect]
     Active Substance: RIVASTIGMINE
     Dosage: 9.5 MG, QD (ONE ADHESIVE DAILY 18MG/10CM2)
     Route: 062
  3. DRUG THERAPY NOS [Suspect]
     Active Substance: UNSPECIFIED INGREDIENT
     Indication: DYSPNOEA
     Dosage: UNK UKN, UNK

REACTIONS (4)
  - Diarrhoea [Recovered/Resolved]
  - Dysstasia [Recovered/Resolved]
  - Vomiting [Recovered/Resolved]
  - Malaise [Recovered/Resolved]
